FAERS Safety Report 13933461 (Version 1)
Quarter: 2017Q3

REPORT INFORMATION
  Report Type: Report from Study
  Country: BR (occurrence: BR)
  Receive Date: 20170904
  Receipt Date: 20170904
  Transmission Date: 20171127
  Serious: Yes (Death, Hospitalization)
  Sender: FDA-Public Use
  Company Number: PHHY2017BR130086

PATIENT
  Age: 86 Year
  Sex: Female

DRUGS (1)
  1. EXELON PATCH [Suspect]
     Active Substance: RIVASTIGMINE
     Indication: PARKINSON^S DISEASE
     Dosage: 4.6 MG, QD PATCH 5 (CM2)
     Route: 062
     Dates: end: 20151226

REACTIONS (6)
  - Death [Fatal]
  - Muscle injury [Unknown]
  - Gastrointestinal motility disorder [Unknown]
  - Aspiration [Unknown]
  - Choking [Unknown]
  - Product use in unapproved indication [Recovered/Resolved]

NARRATIVE: CASE EVENT DATE: 20160101
